FAERS Safety Report 15602228 (Version 3)
Quarter: 2018Q4

REPORT INFORMATION
  Report Type: Spontaneous
  Country: US (occurrence: US)
  Receive Date: 20181109
  Receipt Date: 20181218
  Transmission Date: 20190205
  Serious: Yes (Hospitalization)
  Sender: FDA-Public Use
  Company Number: US-ORPHAN EUROPE-2058648

PATIENT
  Age: 4 Week
  Sex: Male
  Weight: 8.7 kg

DRUGS (1)
  1. CARBAGLU [Suspect]
     Active Substance: CARGLUMIC ACID
     Indication: HYPERGLYCINAEMIA
     Route: 065
     Dates: start: 20180427

REACTIONS (3)
  - Off label use [Not Recovered/Not Resolved]
  - Hyperammonaemia [Unknown]
  - Upper respiratory tract infection [Unknown]

NARRATIVE: CASE EVENT DATE: 20180427
